FAERS Safety Report 8180879-0 (Version None)
Quarter: 2012Q1

REPORT INFORMATION
  Report Type: 
  Country: None (occurrence: None)
  Receive Date: 20120302
  Receipt Date: 20120221
  Transmission Date: 20120608
  Serious: Yes (Other)
  Sender: FDA-Public Use
  Company Number: 2012SP000607

PATIENT
  Age: 11 Year
  Sex: Female
  Weight: 34 kg

DRUGS (1)
  1. CICLESONIDE [Suspect]
     Indication: RHINITIS PERENNIAL
     Route: 045
     Dates: start: 20120117

REACTIONS (1)
  - HERPES ZOSTER [None]
